FAERS Safety Report 23906679 (Version 1)
Quarter: 2024Q2

REPORT INFORMATION
  Report Type: Report from Study
  Country: CA (occurrence: CA)
  Receive Date: 20240528
  Receipt Date: 20240528
  Transmission Date: 20240716
  Serious: Yes (Hospitalization)
  Sender: FDA-Public Use
  Company Number: CA-HORIZON THERAPEUTICS-HZN-2024-005468

PATIENT
  Age: 5 Year
  Sex: Male
  Weight: 15.9 kg

DRUGS (6)
  1. RAVICTI [Suspect]
     Active Substance: GLYCEROL PHENYLBUTYRATE
     Indication: Urea cycle disorder
     Dosage: 1.1 ML, TID- FIRST DOSE
     Route: 065
     Dates: start: 20221121
  2. RAVICTI [Suspect]
     Active Substance: GLYCEROL PHENYLBUTYRATE
     Dosage: 0.9 ML, QID
     Route: 065
     Dates: start: 202405
  3. AMMONUL [Concomitant]
     Active Substance: SODIUM BENZOATE\SODIUM PHENYLACETATE
     Dosage: 250 MG/KG/D
     Route: 065
  4. ARGININE [Concomitant]
     Active Substance: ARGININE
     Dosage: 250MG/KG/D
     Route: 065
  5. IRON [Concomitant]
     Active Substance: IRON
     Indication: Blood iron decreased
     Dosage: 17JAN START: 45 MG, BID
     Route: 065
  6. VITAMINS [Concomitant]
     Active Substance: VITAMINS
     Route: 065

REACTIONS (2)
  - Gastrointestinal tube insertion [Unknown]
  - Skin odour abnormal [Unknown]

NARRATIVE: CASE EVENT DATE: 20240101
